FAERS Safety Report 8358030-3 (Version None)
Quarter: 2012Q2

REPORT INFORMATION
  Report Type: 
  Country: None (occurrence: None)
  Receive Date: 20120511
  Receipt Date: 20120427
  Transmission Date: 20120825
  Serious: Yes (Other)
  Sender: FDA-Public Use
  Company Number: 2012P1003843

PATIENT
  Age: 70 Year
  Sex: Female
  Weight: 51.7101 kg

DRUGS (7)
  1. FENTANYL-100 [Suspect]
     Indication: BACK PAIN
     Dosage: 1 PATCH ;Q72H;TDER 1 PATCH ;Q72H;TDER
     Route: 062
     Dates: start: 20120123, end: 20120201
  2. FENTANYL-100 [Suspect]
     Indication: BACK PAIN
     Dosage: 1 PATCH ;Q72H;TDER 1 PATCH ;Q72H;TDER
     Route: 062
     Dates: start: 20110901, end: 20110901
  3. METOCLOPRAMIDE [Concomitant]
  4. ZOFRAN [Concomitant]
  5. PROCHLORPER SUPPOSITORIES [Concomitant]
  6. AMITIZA [Concomitant]
  7. MORPHINE [Concomitant]

REACTIONS (9)
  - NAUSEA [None]
  - DYSPNOEA [None]
  - SOMNOLENCE [None]
  - DRUG WITHDRAWAL SYNDROME [None]
  - ABDOMINAL PAIN UPPER [None]
  - INADEQUATE ANALGESIA [None]
  - FEELING ABNORMAL [None]
  - TREMOR [None]
  - SNORING [None]
